FAERS Safety Report 9296561 (Version 1)
Quarter: 2013Q2

REPORT INFORMATION
  Report Type: Spontaneous
  Country: US (occurrence: US)
  Receive Date: 20130517
  Receipt Date: 20130517
  Transmission Date: 20140414
  Serious: Yes (Other)
  Sender: FDA-Public Use
  Company Number: US-SHIRE-ALL1-2013-03047

PATIENT
  Age: 53 Year
  Sex: Male
  Weight: 92.52 kg

DRUGS (5)
  1. ADDERALL XR [Suspect]
     Indication: ATTENTION DEFICIT/HYPERACTIVITY DISORDER
     Dosage: 20 MG, 2X/DAY:BID
     Route: 048
     Dates: start: 2013, end: 201304
  2. CYMBALTA [Concomitant]
     Indication: ANXIETY
     Dosage: 60 MG, 1X/DAY:QD
     Route: 048
  3. TRILIPIX [Concomitant]
     Indication: BLOOD CHOLESTEROL INCREASED
     Dosage: 135 MG, 1X/DAY:QD
     Route: 048
  4. SIMVASTATIN [Concomitant]
     Indication: BLOOD CHOLESTEROL INCREASED
     Dosage: 20 MG, 1X/DAY:QD
     Route: 048
  5. LOVAZA [Concomitant]
     Indication: BLOOD TRIGLYCERIDES INCREASED
     Dosage: 1 DF, 2X/DAY:BID
     Route: 048

REACTIONS (7)
  - Gallbladder disorder [Recovered/Resolved]
  - Somnolence [Recovered/Resolved]
  - Palpitations [Recovered/Resolved]
  - Hyperhidrosis [Recovered/Resolved]
  - Nausea [Recovered/Resolved]
  - Prescribed overdose [Recovered/Resolved]
  - Off label use [Recovered/Resolved]
